FAERS Safety Report 23959823 (Version 1)
Quarter: 2024Q2

REPORT INFORMATION
  Report Type: Spontaneous
  Country: CN (occurrence: CN)
  Receive Date: 20240611
  Receipt Date: 20240611
  Transmission Date: 20240715
  Serious: Yes (Hospitalization, Other)
  Sender: FDA-Public Use
  Company Number: CN-AMGEN-CHNSP2024111132

PATIENT
  Age: 67 Year
  Sex: Male
  Weight: 59 kg

DRUGS (1)
  1. XGEVA [Suspect]
     Active Substance: DENOSUMAB
     Indication: Lung neoplasm malignant
     Dosage: 120 MILLIGRAM, QD
     Route: 042
     Dates: start: 20240524, end: 20240524

REACTIONS (1)
  - White blood cell count decreased [Recovering/Resolving]

NARRATIVE: CASE EVENT DATE: 20240527
